FAERS Safety Report 8384579-3 (Version None)
Quarter: 2012Q2

REPORT INFORMATION
  Report Type: 
  Country: None (occurrence: None)
  Receive Date: 20120524
  Receipt Date: 20120517
  Transmission Date: 20120825
  Serious: Yes (Death, Hospitalization)
  Sender: FDA-Public Use
  Company Number: PE-JNJFOC-20120517242

PATIENT
  Age: 70 Year
  Sex: Female

DRUGS (3)
  1. TRAMADOL HCL [Suspect]
     Indication: ARTHRALGIA
     Route: 048
     Dates: start: 20120501, end: 20120501
  2. UNKNOWN MEDICATION [Concomitant]
     Indication: PROPHYLAXIS
     Route: 065
  3. TRAMADOL HCL [Suspect]
     Route: 048
     Dates: start: 20120501, end: 20120501

REACTIONS (5)
  - SYNCOPE [None]
  - VOMITING [None]
  - DEATH [None]
  - MEDICATION ERROR [None]
  - ALTERED STATE OF CONSCIOUSNESS [None]
